FAERS Safety Report 9157663 (Version 1)
Quarter: 2013Q1

REPORT INFORMATION
  Report Type: Spontaneous
  Country: GB (occurrence: None)
  Receive Date: 20130212
  Receipt Date: 20130212
  Transmission Date: 20140127
  Serious: Yes (Disabling)
  Sender: FDA-Public Use
  Company Number: 2013-00211

PATIENT
  Age: 73 Year
  Sex: Male
  Weight: 73 kg

DRUGS (5)
  1. SIMVASTATIN [Suspect]
     Indication: PRODUCT USED FOR UNKNOWN INDICATION
     Dosage: UNKNOWN (40 MG, UNKNOWN), UNKNOWN
     Dates: start: 20121101, end: 20121129
  2. ASPIRIN [Concomitant]
  3. ATENOLOL [Concomitant]
  4. ISOSORBIDE MONONITRATE (ELANTAN) [Concomitant]
  5. METFORMIN [Concomitant]

REACTIONS (2)
  - Muscle spasms [None]
  - Mobility decreased [None]
